FAERS Safety Report 21416981 (Version 1)
Quarter: 2022Q4

REPORT INFORMATION
  Report Type: Spontaneous
  Country: US (occurrence: None)
  Receive Date: 20221006
  Receipt Date: 20221006
  Transmission Date: 20230113
  Serious: Yes (Life-Threatening, Hospitalization, Other)
  Sender: FDA-Public Use
  Company Number: US-ROCHE-3192936

PATIENT
  Age: 35 Year
  Sex: Female

DRUGS (8)
  1. EVRYSDI [Suspect]
     Active Substance: RISDIPLAM
     Indication: Spinal muscular atrophy
     Dosage: YES
     Route: 048
     Dates: start: 20210616
  2. BENADRYL [Concomitant]
     Active Substance: DIPHENHYDRAMINE HYDROCHLORIDE
     Indication: Palpitations
  3. ZOFRAN [Concomitant]
     Active Substance: ONDANSETRON HYDROCHLORIDE
  4. AUGMENTIN [Concomitant]
     Active Substance: AMOXICILLIN\CLAVULANATE POTASSIUM
     Route: 048
     Dates: start: 20210205
  5. EPINEPHRINE [Concomitant]
     Active Substance: EPINEPHRINE
     Dates: start: 20201216
  6. MELOXICAM [Concomitant]
     Active Substance: MELOXICAM
     Dates: start: 20201216
  7. DITROPAN XL [Concomitant]
     Active Substance: OXYBUTYNIN CHLORIDE
     Route: 048
     Dates: start: 20210211, end: 20210211
  8. HONEY [Concomitant]
     Active Substance: HONEY
     Route: 061
     Dates: start: 20210121

REACTIONS (12)
  - Urinary tract infection [Recovering/Resolving]
  - Sepsis [Recovering/Resolving]
  - Paralysis [Unknown]
  - Respiratory failure [Unknown]
  - Hypoventilation [Unknown]
  - Asthenia [Unknown]
  - Illness [Unknown]
  - Pain [Unknown]
  - Musculoskeletal pain [Unknown]
  - Restrictive pulmonary disease [Unknown]
  - Obesity [Unknown]
  - Lymphoedema [Unknown]
